FAERS Safety Report 4350224-7 (Version None)
Quarter: 2004Q2

REPORT INFORMATION
  Report Type: 
  Country: None (occurrence: None)
  Receive Date: 20040428
  Receipt Date: 20040402
  Transmission Date: 20050107
  Serious: Yes (Hospitalization)
  Sender: FDA-Public Use
  Company Number: 7849

PATIENT
  Age: 49 Year
  Sex: Female

DRUGS (6)
  1. METHOTREXATE [Suspect]
     Indication: RHEUMATOID ARTHRITIS
     Dosage: 5 MG WEEKLY IM
     Route: 030
     Dates: start: 19930501
  2. ANAKINRA [Suspect]
     Indication: RHEUMATOID ARTHRITIS
     Dosage: 100 MG SC
     Route: 058
     Dates: start: 20020501, end: 20031001
  3. METHYLPREDNISOLONE [Concomitant]
  4. INDOMETHACIN [Concomitant]
  5. PANTOPRAZOLE SODIUM [Concomitant]
  6. LEUCOVORIN CALCIUM [Concomitant]

REACTIONS (1)
  - BASAL CELL CARCINOMA [None]
